FAERS Safety Report 24916136 (Version 3)
Quarter: 2025Q1

REPORT INFORMATION
  Report Type: Spontaneous
  Country: GR (occurrence: GR)
  Receive Date: 20250203
  Receipt Date: 20250217
  Transmission Date: 20250408
  Serious: Yes (Other)
  Sender: MYLAN
  Company Number: GR-002147023-NVSC2025GR009007

PATIENT
  Age: 79 Year
  Sex: Male

DRUGS (2)
  1. RIVASTIGMINE [Suspect]
     Active Substance: RIVASTIGMINE
     Indication: Dementia Alzheimer^s type
     Dosage: 1.5 MILLIGRAM, BID
     Route: 065
  2. RIVASTIGMINE [Suspect]
     Active Substance: RIVASTIGMINE
     Indication: Cognitive disorder

REACTIONS (7)
  - Mania [Recovering/Resolving]
  - Euphoric mood [Recovered/Resolved]
  - Logorrhoea [Recovered/Resolved]
  - Pressure of speech [Recovered/Resolved]
  - Irritability [Recovered/Resolved]
  - Psychomotor hyperactivity [Recovered/Resolved]
  - Aggression [Recovered/Resolved]
